FAERS Safety Report 13158346 (Version 3)
Quarter: 2018Q3

REPORT INFORMATION
  Report Type: Report from Study
  Country: DE (occurrence: DE)
  Receive Date: 20170127
  Receipt Date: 20180907
  Transmission Date: 20181010
  Serious: Yes (Hospitalization, Other)
  Sender: FDA-Public Use
  Company Number: DE-TEVA-731194GER

PATIENT
  Sex: Male

DRUGS (28)
  1. VINCRISTINE [Suspect]
     Active Substance: VINCRISTINE
     Indication: B-CELL LYMPHOMA
     Dosage: LAST CYCLE: 16?AUG?2016
     Route: 042
     Dates: start: 20160527
  2. VINCRISTINE [Suspect]
     Active Substance: VINCRISTINE
     Route: 042
     Dates: start: 20160816
  3. PREDNISONE. [Suspect]
     Active Substance: PREDNISONE
     Indication: B-CELL LYMPHOMA
     Dosage: DAY 1 TO 5 CYCLE, LAST CYCLE: 16?AUG?2016
     Route: 048
     Dates: start: 20160519
  4. CYCLOPHOSPHAMIDE. [Suspect]
     Active Substance: CYCLOPHOSPHAMIDE
     Dates: start: 20160802
  5. TAZOBACTAM [Concomitant]
     Active Substance: TAZOBACTAM
     Indication: PYREXIA
     Dosage: 13.5 GRAM DAILY;
     Route: 042
     Dates: start: 20160603
  6. DOXORUBICINE [Suspect]
     Active Substance: DOXORUBICIN
     Indication: B-CELL LYMPHOMA
     Dosage: LAST CYCLE: 16?AUG?2016 (1 IN 1 D)
     Route: 042
     Dates: start: 20160527
  7. CYCLOPHOSPHAMIDE. [Suspect]
     Active Substance: CYCLOPHOSPHAMIDE
     Indication: B-CELL LYMPHOMA
     Dosage: LAST CYCLE: 16?AUG?2016 (1 IN 1 D)
     Route: 042
     Dates: start: 20160527
  8. CYCLOPHOSPHAMIDE. [Suspect]
     Active Substance: CYCLOPHOSPHAMIDE
     Dosage: UNK
     Dates: start: 20160629
  9. PEGFILGRASTIM [Suspect]
     Active Substance: PEGFILGRASTIM
     Indication: B-CELL LYMPHOMA
     Dosage: ON DAY 4 OF CYCLE, ONCE
     Route: 058
     Dates: start: 20160819
  10. CYCLOPHOSPHAMIDE. [Suspect]
     Active Substance: CYCLOPHOSPHAMIDE
     Dates: start: 20160716
  11. METAMIZOLE SODIUM [Concomitant]
     Active Substance: METAMIZOLE SODIUM
     Route: 065
  12. DOXORUBICINE [Suspect]
     Active Substance: DOXORUBICIN
     Route: 065
     Dates: start: 20160802
  13. CYCLOPHOSPHAMIDE. [Suspect]
     Active Substance: CYCLOPHOSPHAMIDE
     Dates: start: 20160816
  14. ONDANSETRON [Concomitant]
     Active Substance: ONDANSETRON
     Route: 065
  15. LEVOFLOXACIN. [Concomitant]
     Active Substance: LEVOFLOXACIN
     Indication: APLASIA
     Dosage: 1 DAY
     Dates: start: 20160603, end: 20160603
  16. DOXORUBICINE [Suspect]
     Active Substance: DOXORUBICIN
     Route: 065
     Dates: start: 20160629
  17. VINCRISTINE [Suspect]
     Active Substance: VINCRISTINE
     Route: 065
     Dates: start: 20160713
  18. VINCRISTINE [Suspect]
     Active Substance: VINCRISTINE
     Route: 065
     Dates: start: 20160629
  19. RITUXIMAB. [Suspect]
     Active Substance: RITUXIMAB
     Dosage: 4X 8 DAYS, LAST DOSE PRIOR TO SAE: 30?MAY?2016
     Route: 042
     Dates: start: 20160523
  20. CYCLOPHOSPHAMIDE. [Suspect]
     Active Substance: CYCLOPHOSPHAMIDE
     Dates: start: 20160713
  21. CIPROFLOXACIN. [Concomitant]
     Active Substance: CIPROFLOXACIN
     Dates: start: 20160824, end: 20160829
  22. COLECALCIFEROL [Concomitant]
     Active Substance: CHOLECALCIFEROL
     Dosage: 2 CAPSULE
  23. LEVOTHYROXINE SODIUM. [Concomitant]
     Active Substance: LEVOTHYROXINE SODIUM
     Indication: HYPOTHYROIDISM
     Dosage: 50 MICROGRAM DAILY;
     Route: 048
  24. ACICLOVIR [Concomitant]
     Active Substance: ACYCLOVIR
     Dosage: 600 MILLIGRAM DAILY;
  25. METOCLOPRAMIDE. [Concomitant]
     Active Substance: METOCLOPRAMIDE
     Route: 065
  26. SULFAMETHOXAZOLE/TRIMETHOPRIM [Concomitant]
     Active Substance: SULFAMETHOXAZOLE\TRIMETHOPRIM
     Dosage: ON MONDAY/WEDNESDAY/FRIDAY
     Route: 065
  27. DOXORUBICINE [Suspect]
     Active Substance: DOXORUBICIN
     Route: 065
     Dates: start: 20160713
  28. ALLOPURINOL. [Concomitant]
     Active Substance: ALLOPURINOL
     Dosage: 150 MILLIGRAM DAILY;

REACTIONS (2)
  - Febrile neutropenia [Recovered/Resolved]
  - Febrile neutropenia [Recovered/Resolved]

NARRATIVE: CASE EVENT DATE: 20160606
